FAERS Safety Report 4936683-7 (Version None)
Quarter: 2006Q1

REPORT INFORMATION
  Report Type: 
  Country: None (occurrence: None)
  Receive Date: 20060127
  Receipt Date: 20051114
  Transmission Date: 20060701
  Serious: Yes (Other)
  Sender: FDA-Public Use
  Company Number: 2005155563

PATIENT
  Sex: Male

DRUGS (1)
  1. LYRICA [Suspect]
     Indication: RADICULOPATHY
     Dosage: 150 MG (75 MG, 2 IN 1 D)
     Route: 065

REACTIONS (3)
  - ANORGASMIA [None]
  - ERECTILE DYSFUNCTION [None]
  - PARAESTHESIA [None]
